FAERS Safety Report 9365682 (Version 2)
Quarter: 2013Q3

REPORT INFORMATION
  Report Type: Spontaneous
  Country: US (occurrence: US)
  Receive Date: 20130625
  Receipt Date: 20130723
  Transmission Date: 20140515
  Serious: Yes (Other)
  Sender: FDA-Public Use
  Company Number: US-BAYER-2013-075075

PATIENT
  Age: 25 Year
  Sex: Female
  Weight: 74.38 kg

DRUGS (1)
  1. MIRENA [Suspect]
     Indication: CONTRACEPTION
     Dosage: 20 MCG/24HR, CONT
     Route: 015
     Dates: start: 20120830, end: 20121130

REACTIONS (6)
  - Uterine perforation [Recovered/Resolved]
  - Pelvic pain [Recovered/Resolved]
  - Pain [Recovered/Resolved]
  - Menstruation irregular [None]
  - Vaginal haemorrhage [None]
  - Device dislocation [Recovered/Resolved]
